FAERS Safety Report 17894224 (Version 1)
Quarter: 2020Q2

REPORT INFORMATION
  Report Type: Report from Study
  Country: US (occurrence: US)
  Receive Date: 20200615
  Receipt Date: 20200615
  Transmission Date: 20200714
  Serious: Yes (Hospitalization, Other)
  Sender: FDA-Public Use
  Company Number: US-GLAXOSMITHKLINE-US2020GSK097292

PATIENT
  Age: 38 Year
  Sex: Male
  Weight: 95.69 kg

DRUGS (66)
  1. BACLOFEN. [Concomitant]
     Active Substance: BACLOFEN
     Dosage: 5 MG,BID, SPLIT TABLET
     Route: 048
     Dates: start: 20200106, end: 20200116
  2. KEPPRA [Concomitant]
     Active Substance: LEVETIRACETAM
     Indication: SEIZURE PROPHYLAXIS
     Dosage: 1500 MG, BID
  3. DEXTROSE. [Concomitant]
     Active Substance: DEXTROSE
     Dosage: 45 G
     Route: 048
     Dates: start: 20200601, end: 20200601
  4. LABETALOL [Concomitant]
     Active Substance: LABETALOL\LABETALOL HYDROCHLORIDE
     Dosage: UNK
     Dates: start: 20200321, end: 20200321
  5. LISINOPRIL. [Concomitant]
     Active Substance: LISINOPRIL
     Dosage: 10 MG
     Route: 048
     Dates: start: 20200101, end: 20200104
  6. MAGNESIUM CITRATE. [Concomitant]
     Active Substance: MAGNESIUM CITRATE
     Indication: CONSTIPATION
     Dosage: 296 ML, PRN
     Route: 048
     Dates: start: 20200109, end: 20200117
  7. PHENYLEPHRIN [Concomitant]
     Active Substance: PHENYLEPHRINE HYDROCHLORIDE
     Dosage: UNK, PRN
     Dates: start: 20200321, end: 20200321
  8. BACLOFEN. [Concomitant]
     Active Substance: BACLOFEN
     Dosage: 10 MG, BID, SPLIT TABLET
     Route: 048
     Dates: start: 20200110, end: 20200113
  9. BUPIVACAINE. [Concomitant]
     Active Substance: BUPIVACAINE
     Dosage: UNK, PRN
     Route: 042
     Dates: start: 20200321, end: 20200321
  10. CEFAZOLIN [Concomitant]
     Active Substance: CEFAZOLIN
     Dosage: 100 MG/ML, PRN
     Dates: start: 20200103, end: 20200321
  11. CEFAZOLIN [Concomitant]
     Active Substance: CEFAZOLIN
     Dosage: 500 MG IN 5 ML, TID
     Route: 042
     Dates: start: 20200103, end: 20200103
  12. DOTAREM [Concomitant]
     Active Substance: GADOTERATE MEGLUMINE
     Dosage: UNK
     Route: 042
     Dates: start: 20200104, end: 20200104
  13. HYDRALAZINE INJECTION [Concomitant]
     Active Substance: HYDRALAZINE HYDROCHLORIDE
     Indication: BLOOD PRESSURE SYSTOLIC INCREASED
     Dosage: 10 MG, PRN
     Route: 042
     Dates: start: 20200321, end: 20200322
  14. NOVOLOG PEN [Concomitant]
     Dosage: UNK
     Dates: start: 20200101, end: 20200109
  15. IOPAMIDOL INJECTION [Concomitant]
     Dosage: 60 ML
     Dates: start: 20200115, end: 20200115
  16. EPINEPHRINE + LIDOCAIN [Concomitant]
     Dosage: UNK, PRN
     Dates: start: 20200321, end: 20200321
  17. SUFENTANIL [Concomitant]
     Active Substance: SUFENTANIL
     Dosage: UNK, PRN
     Dates: start: 20200301, end: 20200301
  18. LACOSAMIDE. [Concomitant]
     Active Substance: LACOSAMIDE
     Dosage: 300 MG, EVERY 12 HOURS
     Route: 048
     Dates: start: 20200606, end: 20200606
  19. CEFAZOLIN [Concomitant]
     Active Substance: CEFAZOLIN
     Dosage: 500 MG, SWFI 5 ML
     Route: 042
     Dates: start: 20200324, end: 20200324
  20. DEXTROSE INJECTION 50% [Concomitant]
     Dosage: 25 G
     Route: 042
     Dates: start: 20200601, end: 20200901
  21. FENTANYL PFLASTER [Concomitant]
     Active Substance: FENTANYL
     Dosage: 100MCG/2ML, PRN
     Route: 042
     Dates: start: 20200103, end: 20200103
  22. LORAZEPAM. [Concomitant]
     Active Substance: LORAZEPAM
     Indication: SEIZURE
     Dosage: 1 MG
     Route: 042
     Dates: start: 20200320, end: 20200324
  23. BACLOFEN. [Concomitant]
     Active Substance: BACLOFEN
     Dosage: 5 MG,BID, SPLIT TABLET
     Route: 048
     Dates: start: 20200115, end: 20200116
  24. BACITRACIN. [Concomitant]
     Active Substance: BACITRACIN
     Dosage: UNK, PRN
     Dates: start: 20200103, end: 20200103
  25. DEXAMETHASONE. [Concomitant]
     Active Substance: DEXAMETHASONE
     Dosage: 4 MG
     Dates: start: 20200706, end: 20200706
  26. POLYETHYLENGLYCOL [Concomitant]
     Indication: CONSTIPATION
     Dosage: 17 G
     Route: 048
  27. PROPOFOL. [Concomitant]
     Active Substance: PROPOFOL
     Dosage: UNK, PRN
     Dates: start: 20200321, end: 20200321
  28. SODIUM CHLORIDE 9.9% [Concomitant]
     Dosage: 1000 ML
     Route: 040
     Dates: start: 20200322, end: 20200322
  29. BACLOFEN. [Concomitant]
     Active Substance: BACLOFEN
     Dosage: 5 MG, BID, SPLIT TABLET
     Route: 048
     Dates: start: 20200109, end: 20200110
  30. BACLOFEN. [Concomitant]
     Active Substance: BACLOFEN
     Dosage: 5 MG,EVERY 8 HOURS, SPLIT TABLET
     Route: 048
     Dates: start: 20200113, end: 20200115
  31. CEFAZOLIN [Concomitant]
     Active Substance: CEFAZOLIN
     Dosage: 500 MG IN 5 ML,, TID
     Dates: end: 20200103
  32. DEXTROSE. [Concomitant]
     Active Substance: DEXTROSE
     Indication: HYPOGLYCAEMIA
     Dosage: 15 G
     Route: 048
     Dates: start: 20200601, end: 20200601
  33. DOCUSATE SODIUM. [Concomitant]
     Active Substance: DOCUSATE SODIUM
     Dosage: 100 MG
     Route: 048
     Dates: start: 20200109, end: 20200117
  34. HYDROMORPHONE [Concomitant]
     Active Substance: HYDROMORPHONE
     Dosage: UNK, PRN
     Dates: start: 20200321, end: 20200321
  35. INSULIN ASPART [Concomitant]
     Active Substance: INSULIN ASPART
     Dosage: UNK
     Route: 058
     Dates: start: 20200104, end: 20200106
  36. LACOSAMIDE. [Concomitant]
     Active Substance: LACOSAMIDE
     Dosage: 300 MG
     Route: 042
     Dates: start: 20200321, end: 20200321
  37. LIDOCAIN PATCH 5% [Concomitant]
     Dosage: UNK
     Route: 062
     Dates: start: 20200324, end: 20200404
  38. LIDOCAINE PF [Concomitant]
     Active Substance: LIDOCAINE
     Dosage: 0.5 ML
     Route: 023
     Dates: start: 20200103, end: 20200103
  39. OXYCODONE IR [Concomitant]
     Active Substance: OXYCODONE
     Dosage: 10 MG
     Route: 048
     Dates: start: 20200324, end: 20200331
  40. SUGAMMADEX [Concomitant]
     Active Substance: SUGAMMADEX
     Dosage: UNK, PRN
     Dates: start: 20200103, end: 20200103
  41. THROMBIN [Concomitant]
     Active Substance: THROMBIN
     Dosage: 5000 UNIT, PRN
     Route: 061
  42. LACOSAMIDE. [Concomitant]
     Active Substance: LACOSAMIDE
     Dosage: 300 MG
     Dates: start: 20200327, end: 20200403
  43. LACOSAMIDE. [Concomitant]
     Active Substance: LACOSAMIDE
     Dosage: 300 MG, EVERY 12 HOURS
     Route: 048
     Dates: start: 20200607, end: 20200607
  44. NIRAPARIB [Suspect]
     Active Substance: NIRAPARIB
     Dosage: 300 MG
     Route: 048
     Dates: start: 20200520
  45. CEFAZOLIN [Concomitant]
     Active Substance: CEFAZOLIN
     Dosage: 2 G IN 20 ML
     Route: 042
     Dates: start: 20200103, end: 20200103
  46. DEXTROSE INJECTION 50% [Concomitant]
     Indication: HYPOGLYCAEMIA
     Dosage: 12.5 G
     Route: 042
     Dates: start: 20200601, end: 20200601
  47. LACTULOSE. [Concomitant]
     Active Substance: LACTULOSE
     Dosage: 20 G
     Route: 048
     Dates: start: 20200110, end: 20200110
  48. NICARDIPINE [Concomitant]
     Active Substance: NICARDIPINE
     Dosage: UNK, PRN
     Dates: start: 20200321, end: 20200321
  49. ONDANSETRON [Concomitant]
     Active Substance: ONDANSETRON
     Indication: PROPHYLAXIS OF NAUSEA AND VOMITING
     Dosage: 4 MG, PRN
     Route: 042
  50. SENNA [Concomitant]
     Active Substance: SENNA LEAF\SENNOSIDES\SENNOSIDES A AND B
     Dosage: 17.2 MG
     Route: 048
     Dates: start: 20200107, end: 20200107
  51. VANCOMYCIN INJECTION [Concomitant]
     Active Substance: VANCOMYCIN
     Dosage: UNK, PRN
     Dates: start: 20200321, end: 20200321
  52. CEFAZOLIN [Concomitant]
     Active Substance: CEFAZOLIN
     Dosage: 100 MG/ML, PRN
     Dates: start: 20200321, end: 20200321
  53. CEFAZOLIN [Concomitant]
     Active Substance: CEFAZOLIN
     Dosage: 500 MG IN 5 ML, TID
     Route: 042
     Dates: start: 20200323, end: 20200324
  54. REMIFENTANIL [Concomitant]
     Active Substance: REMIFENTANIL
     Dosage: UNK, PRN
     Dates: start: 20200321, end: 20200321
  55. VECURONIUM INJECTION [Concomitant]
     Dosage: UNK, PRN
     Dates: start: 20200103, end: 20200103
  56. LACOSAMIDE. [Concomitant]
     Active Substance: LACOSAMIDE
     Dosage: 150 MG
     Dates: start: 20200301, end: 20200303
  57. LACOSAMIDE. [Concomitant]
     Active Substance: LACOSAMIDE
     Dosage: 300 MG, EVERY 12 HOURS
     Dates: start: 20200608, end: 20200608
  58. NIRAPARIB [Suspect]
     Active Substance: NIRAPARIB
     Indication: GLIOBLASTOMA
     Dosage: 300 MG
     Route: 048
     Dates: start: 20200421, end: 20200518
  59. BACITRACIN OINTMENT [Concomitant]
     Active Substance: BACITRACIN
     Dosage: UNK, PRN
     Route: 061
     Dates: start: 20200103, end: 20200103
  60. BACLOFEN. [Concomitant]
     Active Substance: BACLOFEN
     Dosage: 5 MG, BID, SPLIT TABLET
     Route: 048
     Dates: start: 20200109, end: 20200109
  61. BACLOFEN. [Concomitant]
     Active Substance: BACLOFEN
     Dosage: 5 MG, SINGLE, SPLIT TABLET
     Route: 048
     Dates: start: 20200115, end: 20200115
  62. VIMPAT [Concomitant]
     Active Substance: LACOSAMIDE
     Indication: SEIZURE PROPHYLAXIS
     Dosage: 300 MG, BID
  63. LIGNOCAINE [Concomitant]
     Active Substance: LIDOCAINE HYDROCHLORIDE
     Dosage: UNK, PRN
     Dates: start: 20200321, end: 20200321
  64. MORPHINE [Concomitant]
     Active Substance: MORPHINE
     Indication: PAIN
     Dosage: UNK, PRN
     Route: 042
     Dates: start: 20200320, end: 20200322
  65. PLASMA-LYTE A [Concomitant]
     Active Substance: MAGNESIUM CHLORIDE\POTASSIUM CHLORIDE\SODIUM ACETATE\SODIUM CHLORIDE\SODIUM GLUCONATE
     Dosage: UNK, PRN
     Dates: start: 20200321, end: 20200321
  66. ROCURONIUM [Concomitant]
     Active Substance: ROCURONIUM BROMIDE
     Dosage: UNK, PRN
     Dates: start: 20200321, end: 20200321

REACTIONS (1)
  - Seizure [Unknown]

NARRATIVE: CASE EVENT DATE: 20200606
